FAERS Safety Report 18147504 (Version 1)
Quarter: 2020Q3

REPORT INFORMATION
  Report Type: Spontaneous
  Country: IE (occurrence: IE)
  Receive Date: 20200813
  Receipt Date: 20200813
  Transmission Date: 20201103
  Serious: Yes (Hospitalization)
  Sender: FDA-Public Use
  Company Number: IE-BRISTOL-MYERS SQUIBB COMPANY-BMS-2020-063687

PATIENT
  Age: 81 Year
  Sex: Female
  Weight: 55 kg

DRUGS (2)
  1. ELIQUIS [Suspect]
     Active Substance: APIXABAN
     Indication: CEREBROVASCULAR ACCIDENT PROPHYLAXIS
     Dosage: 2.5 MILLIGRAM, BID
     Route: 065
     Dates: start: 20200203, end: 20200722
  2. WARFARIN SODIUM. [Suspect]
     Active Substance: WARFARIN SODIUM
     Indication: ATRIAL FIBRILLATION
     Dosage: USED OVER 5 MONTHS
     Route: 048
     Dates: end: 20200722

REACTIONS (5)
  - International normalised ratio increased [Recovered/Resolved]
  - Contraindicated product prescribed [Unknown]
  - Drug monitoring procedure not performed [Unknown]
  - Oedema peripheral [Recovered/Resolved]
  - Contraindicated product administered [Unknown]

NARRATIVE: CASE EVENT DATE: 20200203
